FAERS Safety Report 20831715 (Version 1)
Quarter: 2022Q2

REPORT INFORMATION
  Report Type: Spontaneous
  Country: US (occurrence: US)
  Receive Date: 20220516
  Receipt Date: 20220516
  Transmission Date: 20220720
  Serious: Yes (Other)
  Sender: FDA-Public Use
  Company Number: US-SA-SAC20220512000523

PATIENT
  Age: 43 Year
  Sex: Female

DRUGS (1)
  1. ZANTAC [Suspect]
     Active Substance: RANITIDINE HYDROCHLORIDE
     Dosage: UNKNOWN AT THIS TIME FREQUENCY : OTHER
     Dates: start: 198001, end: 201801

REACTIONS (2)
  - Breast cancer stage II [Unknown]
  - Bladder cancer [Unknown]

NARRATIVE: CASE EVENT DATE: 20000401
